FAERS Safety Report 4933624-3 (Version None)
Quarter: 2006Q1

REPORT INFORMATION
  Report Type: 
  Country: None (occurrence: None)
  Receive Date: 20060306
  Receipt Date: 20060220
  Transmission Date: 20060701
  Serious: Yes (Other)
  Sender: FDA-Public Use
  Company Number: PL-ROCHE-437554

PATIENT
  Age: 55 Year
  Sex: Female

DRUGS (3)
  1. XELODA [Suspect]
     Indication: BREAST CANCER
     Route: 065
  2. XELODA [Suspect]
     Dosage: CAPECITABINE RESUMED WITH 25% DOSE REDUCTION
     Route: 065
  3. ZOLEDRONIC ACID [Concomitant]
     Indication: BREAST CANCER
     Route: 065

REACTIONS (2)
  - MASS [None]
  - SKIN LESION [None]
